FAERS Safety Report 6740659-7 (Version None)
Quarter: 2010Q2

REPORT INFORMATION
  Report Type: 
  Country: None (occurrence: None)
  Receive Date: 20100525
  Receipt Date: 20100513
  Transmission Date: 20101027
  Serious: Yes (Other)
  Sender: FDA-Public Use
  Company Number: US-WATSON-2010-06562

PATIENT

DRUGS (5)
  1. HYDROXYCHLOROQUINE SULFATE (WATSON LABORATORIES) [Suspect]
     Indication: SYSTEMIC LUPUS ERYTHEMATOSUS
     Dosage: 200 MG, DAILY
     Route: 048
     Dates: start: 20100201, end: 20100509
  2. LEXAPRO [Suspect]
     Indication: MOOD ALTERED
     Dosage: 10 MG, DAILY
     Route: 048
     Dates: start: 20100503, end: 20100505
  3. LEXAPRO [Suspect]
     Indication: DEPRESSED MOOD
  4. MOBIC [Concomitant]
     Indication: ARTHRALGIA
     Dosage: UNK
     Route: 048
     Dates: end: 20100510
  5. XOPENEX [Concomitant]
     Indication: ASTHMA
     Dosage: UNK
     Route: 055
     Dates: end: 20100510

REACTIONS (27)
  - AGGRESSION [None]
  - APHASIA [None]
  - ASTHENIA [None]
  - BLEPHAROSPASM [None]
  - BLOOD KETONE BODY [None]
  - DECREASED APPETITE [None]
  - DEHYDRATION [None]
  - DEPRESSED LEVEL OF CONSCIOUSNESS [None]
  - DEPRESSED MOOD [None]
  - DIZZINESS [None]
  - DRUG INTERACTION [None]
  - FALL [None]
  - FEELING ABNORMAL [None]
  - HEADACHE [None]
  - HEART RATE IRREGULAR [None]
  - HYPOKALAEMIA [None]
  - MENTAL DISORDER [None]
  - MOOD ALTERED [None]
  - MUSCLE SPASMS [None]
  - MUSCLE TWITCHING [None]
  - MYALGIA [None]
  - NAUSEA [None]
  - PARAESTHESIA [None]
  - PERSONALITY CHANGE [None]
  - SYNCOPE [None]
  - TREMOR [None]
  - WHITE BLOOD CELL COUNT INCREASED [None]
